FAERS Safety Report 12248357 (Version 1)
Quarter: 2016Q2

REPORT INFORMATION
  Report Type: Spontaneous
  Country: US (occurrence: None)
  Receive Date: 20160407
  Receipt Date: 20160407
  Transmission Date: 20160815
  Serious: Yes (Other)
  Sender: FDA-Public Use
  Company Number: None

PATIENT
  Age: 5 Year
  Sex: Male
  Weight: 22.68 kg

DRUGS (1)
  1. DELSYM (DEXTROMETHORPHAN) [Suspect]
     Active Substance: DEXTROMETHORPHAN
     Indication: COUGH
     Dosage: 3 TEASPOON(S) EVERY 12 HOURS TAKEN BY MOUTH
     Route: 048
     Dates: start: 20160402, end: 20160404

REACTIONS (3)
  - Conversion disorder [None]
  - Hallucination, visual [None]
  - Middle insomnia [None]

NARRATIVE: CASE EVENT DATE: 20160403
